FAERS Safety Report 24025943 (Version 2)
Quarter: 2024Q4

REPORT INFORMATION
  Report Type: Spontaneous
  Country: US (occurrence: US)
  Receive Date: 20240628
  Receipt Date: 20241014
  Transmission Date: 20250115
  Serious: No
  Sender: ROCHE
  Company Number: US-ROCHE-3502197

PATIENT
  Age: 71 Year
  Sex: Female
  Weight: 65.77 kg

DRUGS (3)
  1. ALECENSA [Suspect]
     Active Substance: ALECTINIB HYDROCHLORIDE
     Indication: Non-small cell lung cancer metastatic
     Route: 048
     Dates: start: 202304
  2. ALECENSA [Suspect]
     Active Substance: ALECTINIB HYDROCHLORIDE
     Route: 048
     Dates: start: 202305
  3. LINZESS [Suspect]
     Active Substance: LINACLOTIDE
     Indication: Constipation
     Dosage: 72 MCG
     Route: 048
     Dates: start: 20240105

REACTIONS (7)
  - Constipation [Not Recovered/Not Resolved]
  - Weight increased [Unknown]
  - Weight decreased [Unknown]
  - Diarrhoea [Unknown]
  - Gait inability [Not Recovered/Not Resolved]
  - Fatigue [Not Recovered/Not Resolved]
  - Constipation [Not Recovered/Not Resolved]
